FAERS Safety Report 10308320 (Version 2)
Quarter: 2014Q4

REPORT INFORMATION
  Report Type: Spontaneous
  Country: IT (occurrence: IT)
  Receive Date: 20140716
  Receipt Date: 20141016
  Transmission Date: 20150528
  Serious: Yes (Hospitalization)
  Sender: FDA-Public Use
  Company Number: IT-SA-2014SA092990

PATIENT
  Age: 35 Year
  Sex: Male

DRUGS (3)
  1. TALOFEN [Suspect]
     Active Substance: PROMAZINE HYDROCHLORIDE
     Indication: DRUG ABUSE
     Route: 048
     Dates: start: 20140705, end: 20140705
  2. VALIUM [Suspect]
     Active Substance: DIAZEPAM
     Indication: DRUG ABUSE
     Route: 048
     Dates: start: 20140705, end: 20140705
  3. STILNOX [Suspect]
     Active Substance: ZOLPIDEM TARTRATE
     Indication: DRUG ABUSE
     Route: 048
     Dates: start: 20140706, end: 20140706

REACTIONS (2)
  - Confusional state [Recovering/Resolving]
  - Drug abuse [Recovering/Resolving]

NARRATIVE: CASE EVENT DATE: 20140706
